FAERS Safety Report 6846239-7 (Version None)
Quarter: 2010Q3

REPORT INFORMATION
  Report Type: 
  Country: None (occurrence: None)
  Receive Date: 20100715
  Receipt Date: 20070914
  Transmission Date: 20110219
  Serious: No
  Sender: FDA-Public Use
  Company Number: US-PFIZER INC-2007077712

PATIENT
  Sex: Male
  Weight: 66.7 kg

DRUGS (8)
  1. CHANTIX [Suspect]
     Indication: SMOKING CESSATION THERAPY
     Route: 048
     Dates: start: 20070911
  2. ZETIA [Concomitant]
  3. THEOPHYLLINE [Concomitant]
  4. LIPITOR [Concomitant]
  5. COMBIVENT [Concomitant]
     Route: 055
  6. TUMS [Concomitant]
  7. ACETYLSALICYLIC ACID [Concomitant]
  8. NEXIUM [Concomitant]
     Indication: GASTROOESOPHAGEAL REFLUX DISEASE

REACTIONS (2)
  - ABDOMINAL DISCOMFORT [None]
  - VOMITING [None]
